FAERS Safety Report 18579076 (Version 1)
Quarter: 2020Q4

REPORT INFORMATION
  Report Type: Spontaneous
  Country: US (occurrence: US)
  Receive Date: 20201203
  Receipt Date: 20201203
  Transmission Date: 20210114
  Serious: Yes (Other)
  Sender: FDA-Public Use
  Company Number: None

PATIENT
  Age: 73 Year
  Sex: Female

DRUGS (1)
  1. LOSARTAN. [Suspect]
     Active Substance: LOSARTAN
     Indication: HYPERTENSION
     Route: 048
     Dates: start: 20201126

REACTIONS (5)
  - Dizziness [None]
  - Product substitution issue [None]
  - Fluid retention [None]
  - Blood pressure increased [None]
  - Weight increased [None]

NARRATIVE: CASE EVENT DATE: 20201203
